FAERS Safety Report 9198424 (Version 1)
Quarter: 2013Q1

REPORT INFORMATION
  Report Type: Spontaneous
  Country: US (occurrence: None)
  Receive Date: 20130327
  Receipt Date: 20130327
  Transmission Date: 20140127
  Serious: Yes (Hospitalization)
  Sender: FDA-Public Use
  Company Number: None

PATIENT
  Age: 67 Year
  Sex: Male
  Weight: 97.52 kg

DRUGS (1)
  1. CIPRO [Suspect]
     Indication: INFECTION
     Dosage: 1 TABLET  3X A DAY
     Dates: start: 20121201

REACTIONS (7)
  - Immune system disorder [None]
  - Fatigue [None]
  - Amnesia [None]
  - Impaired healing [None]
  - Tendon pain [None]
  - Local swelling [None]
  - Joint swelling [None]
